FAERS Safety Report 5528642-0 (Version None)
Quarter: 2007Q4

REPORT INFORMATION
  Report Type: 
  Country: None (occurrence: None)
  Receive Date: 20071129
  Receipt Date: 20071126
  Transmission Date: 20080405
  Serious: Yes (Hospitalization, Other)
  Sender: FDA-Public Use
  Company Number: TR-BRISTOL-MYERS SQUIBB COMPANY-13994348

PATIENT
  Age: 40 Year
  Sex: Male

DRUGS (1)
  1. TRIAMCINOLONE [Suspect]
     Indication: PAIN IN EXTREMITY
     Dosage: INJECTION
     Route: 008

REACTIONS (1)
  - SUBDURAL HAEMATOMA [None]
